FAERS Safety Report 23216139 (Version 2)
Quarter: 2024Q1

REPORT INFORMATION
  Report Type: Report from Study
  Country: US (occurrence: US)
  Receive Date: 20231122
  Receipt Date: 20240104
  Transmission Date: 20240410
  Serious: Yes (Hospitalization)
  Sender: FDA-Public Use
  Company Number: US-002147023-NVSC2023US244458

PATIENT
  Age: 79 Year
  Sex: Male

DRUGS (1)
  1. ENTRESTO [Suspect]
     Active Substance: SACUBITRIL\VALSARTAN
     Indication: Cardiac failure
     Dosage: 1 DOSAGE FORM, BID (24/26 MG)
     Route: 048
     Dates: start: 20231011

REACTIONS (14)
  - Atrial fibrillation [Unknown]
  - Hypersensitivity [Not Recovered/Not Resolved]
  - Oropharyngeal pain [Unknown]
  - Sinus congestion [Not Recovered/Not Resolved]
  - Weight fluctuation [Unknown]
  - Dehydration [Unknown]
  - Hypotension [Unknown]
  - Asthenia [Not Recovered/Not Resolved]
  - Lung disorder [Unknown]
  - Dyspnoea [Unknown]
  - Cough [Not Recovered/Not Resolved]
  - Pollakiuria [Not Recovered/Not Resolved]
  - Thirst [Unknown]
  - Intentional dose omission [Unknown]

NARRATIVE: CASE EVENT DATE: 20231001
